FAERS Safety Report 13994556 (Version 1)
Quarter: 2017Q3

REPORT INFORMATION
  Report Type: Spontaneous
  Country: DE (occurrence: DE)
  Receive Date: 20170920
  Receipt Date: 20170920
  Transmission Date: 20171128
  Serious: Yes (Other)
  Sender: FDA-Public Use
  Company Number: DE-AMGEN-DEUSP2017142108

PATIENT
  Age: 51 Year
  Sex: Female

DRUGS (12)
  1. PREDNISOLONE. [Concomitant]
     Active Substance: PREDNISOLONE
     Dosage: 5 MG, 1-0-0
  2. NOVALGIN [Concomitant]
     Active Substance: METAMIZOLE SODIUM
     Dosage: 500 MG, 1-1-1
  3. MTX [Concomitant]
     Active Substance: METHOTREXATE SODIUM
     Dosage: 7.5 MG, 1X/WEEKLY
  4. FENTANYL. [Concomitant]
     Active Substance: FENTANYL
     Dosage: 100 UG, EVERY 3 DAYS
  5. TRAMADOL. [Concomitant]
     Active Substance: TRAMADOL
     Dosage: 100 MG, 1-0-0
  6. PANTOZOL [Concomitant]
     Active Substance: PANTOPRAZOLE SODIUM
     Dosage: 20 MG, 1-0-1
  7. VIANI [Concomitant]
     Active Substance: FLUTICASONE PROPIONATE\SALMETEROL XINAFOATE
     Dosage: 1 DF, 1-0-1
     Route: 055
  8. SALBUTAMOL [Concomitant]
     Active Substance: ALBUTEROL
     Dosage: UNK, AS NEEDED
     Route: 055
  9. ENBREL [Suspect]
     Active Substance: ETANERCEPT
     Indication: RHEUMATOID ARTHRITIS
     Dosage: 50 MG, 1X/WEEKLY
     Route: 065
     Dates: start: 20160321
  10. FOLIC ACID. [Concomitant]
     Active Substance: FOLIC ACID
     Dosage: 7.5 MG, 1X/WEEKLY
  11. DEKRISTOL [Concomitant]
     Active Substance: CHOLECALCIFEROL
     Dosage: EVERY 14 DAYS
  12. CELEBREX [Concomitant]
     Active Substance: CELECOXIB
     Dosage: 200 MG, 1-0-1

REACTIONS (3)
  - Nasopharyngitis [Not Recovered/Not Resolved]
  - Osteoarthritis [Not Recovered/Not Resolved]
  - Condition aggravated [Not Recovered/Not Resolved]

NARRATIVE: CASE EVENT DATE: 20170829
